FAERS Safety Report 6880888-5 (Version None)
Quarter: 2010Q3

REPORT INFORMATION
  Report Type: 
  Country: None (occurrence: None)
  Receive Date: 20100728
  Receipt Date: 20100718
  Transmission Date: 20110219
  Serious: Yes (Hospitalization, Other)
  Sender: FDA-Public Use
  Company Number: US-ABBOTT-09P-163-0617171-00

PATIENT
  Sex: Male
  Weight: 62.652 kg

DRUGS (21)
  1. HUMIRA [Suspect]
     Indication: RHEUMATOID ARTHRITIS
     Route: 058
     Dates: start: 20060101, end: 20091216
  2. HUMIRA [Suspect]
     Route: 058
     Dates: start: 20100101
  3. KLOR-CON [Concomitant]
     Indication: ELECTROLYTE SUBSTITUTION THERAPY
     Route: 048
  4. HYDROCHLOROTHIAZIDE [Concomitant]
     Indication: HYPERTENSION
     Route: 048
  5. PREDNISONE [Concomitant]
     Indication: RHEUMATOID ARTHRITIS
     Route: 048
     Dates: start: 20091201
  6. PREDNISONE [Concomitant]
     Dosage: QD
     Route: 048
  7. AMLODIPINE [Concomitant]
     Indication: HYPERTENSION
     Route: 048
  8. LOVASTATIN [Concomitant]
     Indication: BLOOD CHOLESTEROL INCREASED
     Route: 048
  9. AZATHIOPRINE [Concomitant]
     Indication: RHEUMATOID ARTHRITIS
     Route: 048
  10. PLAQUENIL [Concomitant]
     Indication: RHEUMATOID ARTHRITIS
     Dosage: BID
     Route: 048
     Dates: start: 19950101
  11. DALMANE [Concomitant]
     Indication: INSOMNIA
     Route: 048
  12. CYLCLOBENZAPRINE [Concomitant]
     Indication: RHEUMATOID ARTHRITIS
     Route: 048
  13. LORTAB [Concomitant]
     Indication: ARTHRALGIA
     Dosage: 50/500 3 IN ONE DAY AS NEEDED
     Route: 048
  14. OMEPRAZOLE [Concomitant]
     Indication: GASTROOESOPHAGEAL REFLUX DISEASE
     Dosage: QD
     Route: 048
  15. UNKNOWN STATIN [Concomitant]
     Indication: BLOOD CHOLESTEROL
     Route: 048
  16. FLEXERIL [Concomitant]
     Indication: JOINT STIFFNESS
     Route: 048
  17. FLEXERIL [Concomitant]
     Indication: PAIN
  18. FLOMAX [Concomitant]
     Indication: PROSTATIC DISORDER
     Route: 048
  19. VITAMIN B [Concomitant]
     Indication: PRODUCT USED FOR UNKNOWN INDICATION
  20. FISH OIL [Concomitant]
     Indication: PRODUCT USED FOR UNKNOWN INDICATION
     Route: 048
  21. GARLIC [Concomitant]
     Indication: PRODUCT USED FOR UNKNOWN INDICATION

REACTIONS (9)
  - COUGH [None]
  - LOSS OF CONSCIOUSNESS [None]
  - MUSCLE SPASMS [None]
  - OEDEMA PERIPHERAL [None]
  - PNEUMONIA [None]
  - PYREXIA [None]
  - RASH ERYTHEMATOUS [None]
  - VOMITING [None]
  - WEIGHT DECREASED [None]
